FAERS Safety Report 8215269-5 (Version None)
Quarter: 2012Q1

REPORT INFORMATION
  Report Type: 
  Country: None (occurrence: None)
  Receive Date: 20120316
  Receipt Date: 20120313
  Transmission Date: 20120608
  Serious: Yes (Other)
  Sender: FDA-Public Use
  Company Number: JP-PFIZER INC-2012061358

PATIENT
  Age: 76 Year
  Sex: Female

DRUGS (4)
  1. ALDACTONE [Suspect]
     Dosage: 25 MG, 1X/DAY
     Route: 048
  2. ALFACALCIDOL [Interacting]
     Dosage: 1 UG, UNK
  3. FUROSEMIDE [Interacting]
     Dosage: 40 MG, 1X/DAY
     Route: 048
  4. OLMESARTAN [Concomitant]

REACTIONS (6)
  - AZOTAEMIA [None]
  - BLOOD CREATININE INCREASED [None]
  - DEHYDRATION [None]
  - HYPERCALCAEMIA [None]
  - DRUG INTERACTION [None]
  - HYPERKALAEMIA [None]
